FAERS Safety Report 5345981-7 (Version None)
Quarter: 2007Q2

REPORT INFORMATION
  Report Type: 
  Country: None (occurrence: None)
  Receive Date: 20070605
  Receipt Date: 20070524
  Transmission Date: 20071010
  Serious: Yes (Hospitalization)
  Sender: FDA-Public Use
  Company Number: FR-ROCHE-499513

PATIENT
  Age: 34 Year
  Sex: Female

DRUGS (3)
  1. APRANAX [Suspect]
     Indication: DRUG USE FOR UNKNOWN INDICATION
     Route: 048
     Dates: start: 20070412, end: 20070416
  2. DEROXAT [Suspect]
     Indication: DRUG USE FOR UNKNOWN INDICATION
     Route: 048
     Dates: start: 20070410, end: 20070416
  3. LANSOPRAZOLE [Suspect]
     Indication: DRUG USE FOR UNKNOWN INDICATION
     Route: 048
     Dates: start: 20070301, end: 20070416

REACTIONS (5)
  - AGRANULOCYTOSIS [None]
  - ANAEMIA [None]
  - DISSEMINATED INTRAVASCULAR COAGULATION [None]
  - RENAL FAILURE ACUTE [None]
  - SHOCK [None]
